FAERS Safety Report 22210285 (Version 1)
Quarter: 2023Q2

REPORT INFORMATION
  Report Type: Report from Study
  Country: US (occurrence: US)
  Receive Date: 20230414
  Receipt Date: 20230414
  Transmission Date: 20230721
  Serious: Yes (Other)
  Sender: FDA-Public Use
  Company Number: US-ABBVIE-4296827

PATIENT
  Age: 63 Year
  Sex: Female

DRUGS (6)
  1. SKYRIZI [Suspect]
     Active Substance: RISANKIZUMAB-RZAA
     Indication: Crohn^s disease
     Dosage: AT WEEK 12?360MG/2.4ML ?FORM STRENGTH: 150 MILLIGRAM
     Route: 058
     Dates: start: 20221207, end: 20221207
  2. SKYRIZI [Suspect]
     Active Substance: RISANKIZUMAB-RZAA
     Dosage: THIRD DOSE, FORM STRENGTH: 360 MILLIGRAM
     Route: 058
     Dates: start: 20230329
  3. SKYRIZI [Suspect]
     Active Substance: RISANKIZUMAB-RZAA
     Dosage: SECOND DOSE, FORM STRENGTH: 360 MILLIGRAM
     Route: 058
     Dates: start: 20230102, end: 20230102
  4. SKYRIZI [Suspect]
     Active Substance: RISANKIZUMAB-RZAA
     Indication: Crohn^s disease
     Route: 042
     Dates: start: 202209, end: 202209
  5. SKYRIZI [Suspect]
     Active Substance: RISANKIZUMAB-RZAA
     Indication: Crohn^s disease
     Route: 042
     Dates: start: 202210, end: 202210
  6. SKYRIZI [Suspect]
     Active Substance: RISANKIZUMAB-RZAA
     Indication: Crohn^s disease
     Route: 042
     Dates: start: 202211, end: 202211

REACTIONS (6)
  - Squamous cell carcinoma of skin [Unknown]
  - Nausea [Unknown]
  - Sinus disorder [Unknown]
  - Arthralgia [Unknown]
  - Medication error [Unknown]
  - Abdominal distension [Unknown]

NARRATIVE: CASE EVENT DATE: 20230202
